FAERS Safety Report 23816737 (Version 4)
Quarter: 2024Q2

REPORT INFORMATION
  Report Type: Spontaneous
  Country: IL (occurrence: IL)
  Receive Date: 20240504
  Receipt Date: 20240524
  Transmission Date: 20240716
  Serious: Yes (Death, Hospitalization, Other)
  Sender: FDA-Public Use
  Company Number: IL-UNITED THERAPEUTICS-UNT-2024-012928

PATIENT
  Age: 76 Year
  Sex: Female
  Weight: 63 kg

DRUGS (2)
  1. REMODULIN [Suspect]
     Active Substance: TREPROSTINIL
     Indication: Pulmonary arterial hypertension
     Dosage: UNK (AT A RATE OF 0.05 ML/HR),CONTINUING
     Route: 058
  2. REMODULIN [Suspect]
     Active Substance: TREPROSTINIL
     Dosage: UNK, CONTINUING
     Route: 058
     Dates: start: 20180118

REACTIONS (6)
  - Condition aggravated [Fatal]
  - Multiple organ dysfunction syndrome [Fatal]
  - Pyrexia [Unknown]
  - Abdominal pain [Unknown]
  - Inflammatory marker increased [Unknown]
  - Device malfunction [Unknown]

NARRATIVE: CASE EVENT DATE: 20240401
